FAERS Safety Report 11100320 (Version 1)
Quarter: 2015Q2

REPORT INFORMATION
  Report Type: Spontaneous
  Country: US (occurrence: US)
  Receive Date: 20150508
  Receipt Date: 20150508
  Transmission Date: 20150821
  Serious: Yes (Death, Hospitalization)
  Sender: FDA-Public Use
  Company Number: US-TARO PHARMACEUTICALS U.S.A., INC-2015SUN01100

PATIENT
  Age: 65 Year
  Sex: Female

DRUGS (4)
  1. AMIODARONE [Interacting]
     Active Substance: AMIODARONE
     Indication: ATRIAL FIBRILLATION
     Dosage: 150 MG, UNK
     Route: 040
  2. AMIODARONE [Interacting]
     Active Substance: AMIODARONE
     Dosage: 0.5 MG/MIN, OVERNIGHT
     Route: 042
  3. ACETAMINOPHEN. [Suspect]
     Active Substance: ACETAMINOPHEN
     Indication: PRODUCT USED FOR UNKNOWN INDICATION
     Dosage: LOW DOSE, 3900MG IN 48 HOURS
     Route: 065
  4. AMIODARONE [Interacting]
     Active Substance: AMIODARONE
     Indication: ATRIAL FIBRILLATION
     Dosage: 200 MG, 3 DOSES
     Route: 048

REACTIONS (3)
  - Drug interaction [Unknown]
  - Drug-induced liver injury [Recovering/Resolving]
  - Multi-organ failure [Fatal]
